FAERS Safety Report 9627968 (Version 1)
Quarter: 2013Q4

REPORT INFORMATION
  Report Type: Spontaneous
  Country: CA (occurrence: CA)
  Receive Date: 20131016
  Receipt Date: 20131016
  Transmission Date: 20140711
  Serious: Yes (Hospitalization)
  Sender: FDA-Public Use
  Company Number: PHHY2013CA113169

PATIENT
  Age: 69 Year
  Sex: Male

DRUGS (2)
  1. VALPROIC ACID [Suspect]
  2. PHENYTOIN [Suspect]

REACTIONS (9)
  - Micturition urgency [Unknown]
  - Stevens-Johnson syndrome [Unknown]
  - Rash erythematous [Unknown]
  - Pyrexia [Unknown]
  - Fatigue [Unknown]
  - Asthenia [Unknown]
  - Nausea [Unknown]
  - Vomiting [Unknown]
  - Mucous membrane disorder [Unknown]
